FAERS Safety Report 4772033-7 (Version None)
Quarter: 2005Q3

REPORT INFORMATION
  Report Type: 
  Country: None (occurrence: None)
  Receive Date: 20050916
  Receipt Date: 20050908
  Transmission Date: 20060218
  Serious: Yes (Death, Other)
  Sender: FDA-Public Use
  Company Number: FR-ABBOTT-05P-056-0310778-00

PATIENT
  Sex: Male
  Weight: 70 kg

DRUGS (5)
  1. SIMDAX [Suspect]
     Indication: CARDIAC FAILURE
     Route: 042
     Dates: start: 20050902
  2. SIMDAX [Suspect]
     Route: 042
     Dates: start: 20050902, end: 20050902
  3. ENOXAPARIN SODIUM [Concomitant]
     Indication: DEEP VEIN THROMBOSIS
     Route: 058
  4. PANTOPRAZOLE [Concomitant]
     Indication: PROPHYLAXIS
     Route: 042
  5. PANTOPRAZOLE [Concomitant]
     Indication: STRESS

REACTIONS (2)
  - DEATH [None]
  - HYPOTENSION [None]
